FAERS Safety Report 21157630 (Version 1)
Quarter: 2022Q3

REPORT INFORMATION
  Report Type: Spontaneous
  Country: US (occurrence: US)
  Receive Date: 20220801
  Receipt Date: 20220801
  Transmission Date: 20221026
  Serious: Yes (Other)
  Sender: FDA-Public Use
  Company Number: US-MYLANLABS-2022M1082797

PATIENT
  Age: 69 Year
  Sex: Female

DRUGS (27)
  1. TRAMADOL [Interacting]
     Active Substance: TRAMADOL
     Indication: Osteoarthritis
     Dosage: 50 MILLIGRAM, TID (1 TABLET IN THE MORNING, EVENING, AND BEDTIME)
     Route: 065
  2. GABAPENTIN [Suspect]
     Active Substance: GABAPENTIN
     Indication: Neuropathy peripheral
     Dosage: 100 MILLIGRAM, TID (1 CAPSULE IN THE MORNING, EVENING AND BEDTIME)
     Route: 065
  3. PREGABALIN [Suspect]
     Active Substance: PREGABALIN
     Indication: Neuropathy peripheral
     Dosage: 150 MILLIGRAM, BID (1 CAPSULE IN THE MORNING AND BEDTIME)
     Route: 065
  4. PREGABALIN [Suspect]
     Active Substance: PREGABALIN
     Dosage: 225 MILLIGRAM, BID (1 CAPSULE IN THE MORNING AND BEDTIME)
     Route: 065
  5. ATORVASTATIN [Interacting]
     Active Substance: ATORVASTATIN
     Indication: Hyperlipidaemia
     Dosage: 40 MILLIGRAM, QD (1 TABLET IN THE MORNING)
     Route: 065
  6. CARVEDILOL [Interacting]
     Active Substance: CARVEDILOL
     Indication: Hypertension
     Dosage: 6.25 MILLIGRAM, BID (1 TABLET IN THE MORNING AND BEDTIME)
     Route: 065
  7. OMEPRAZOLE [Interacting]
     Active Substance: OMEPRAZOLE
     Indication: Gastrooesophageal reflux disease
     Dosage: 40 MILLIGRAM, QD (1 TABLET IN THE MORNING)
     Route: 065
  8. PHENYTOIN [Interacting]
     Active Substance: PHENYTOIN
     Indication: Epilepsy
     Dosage: 100 MILLIGRAM, BID  (1 TABLET IN THE MORNING AND BEDTIME)
     Route: 065
  9. AMITRIPTYLINE [Interacting]
     Active Substance: AMITRIPTYLINE
     Indication: Neuropathy peripheral
     Dosage: 75 MILLIGRAM, HS (1 TABLET AT BEDTIME)
     Route: 065
  10. AMITRIPTYLINE [Interacting]
     Active Substance: AMITRIPTYLINE
     Dosage: 50 MILLIGRAM
     Route: 065
  11. AMITRIPTYLINE [Interacting]
     Active Substance: AMITRIPTYLINE
     Dosage: 25 MILLIGRAM
     Route: 065
  12. DULOXETINE [Interacting]
     Active Substance: DULOXETINE
     Indication: Neuropathy peripheral
     Dosage: 60 MILLIGRAM, QD (1 CAPSULE IN THE MORNING)
     Route: 065
  13. HYDROXYZINE [Interacting]
     Active Substance: HYDROXYZINE HYDROCHLORIDE
     Indication: Anxiety
     Dosage: 50 MILLIGRAM, HS (1 TABLET AT BEDTIME)
     Route: 065
  14. ALPRAZOLAM [Concomitant]
     Active Substance: ALPRAZOLAM
     Indication: Anxiety
     Dosage: 0.5 MILLIGRAM, PRN (1 TABLET AS NEEDED)
     Route: 065
  15. DILTIAZEM [Concomitant]
     Active Substance: DILTIAZEM
     Indication: Atrial fibrillation
     Dosage: 120 MILLIGRAM, QD (1 TABLET IN THE MORNING)
     Route: 065
  16. ASPIRIN [Concomitant]
     Active Substance: ASPIRIN
     Indication: Product used for unknown indication
     Dosage: 81 MILLIGRAM, QD (1 TABLET IN THE MORNING)
     Route: 065
  17. APIXABAN [Concomitant]
     Active Substance: APIXABAN
     Indication: Product used for unknown indication
     Dosage: 5 MILLIGRAM, BID (1 TABLET IN THE MORNING AND EVENING)
     Route: 065
  18. ALBUTEROL [Concomitant]
     Active Substance: ALBUTEROL
     Indication: Chronic obstructive pulmonary disease
     Dosage: 90 MICROGRAM, Q6H (2 PUFFS EVERY 6 H AS NEEDED)
     Route: 065
  19. ALBUTEROL\IPRATROPIUM [Concomitant]
     Active Substance: ALBUTEROL\IPRATROPIUM
     Indication: Chronic obstructive pulmonary disease
     Dosage: UNK UNK, QID (0.5 MG-3 MG 1 VIAL VIA NEBULIZER FOUR TIMES DAILY)
     Route: 065
  20. TIOTROPIUM [Concomitant]
     Active Substance: TIOTROPIUM
     Indication: Chronic obstructive pulmonary disease
     Dosage: 1.25 MICROGRAM, QD (1.25 MCG 2 PUFFS ONCE DAILY)
     Route: 065
  21. POTASSIUM CHLORIDE [Concomitant]
     Active Substance: POTASSIUM CHLORIDE
     Indication: Hypokalaemia
     Dosage: 20 MILLIEQUIVALENT, QD (1 TABLET IN THE MORNING)
     Route: 065
  22. LEVOTHYROXINE [Concomitant]
     Active Substance: LEVOTHYROXINE
     Indication: Hypothyroidism
     Dosage: 25 MICROGRAM, QD (25 MCG 1 TABLET IN THE MORNING)
     Route: 065
  23. FUROSEMIDE [Concomitant]
     Active Substance: FUROSEMIDE
     Indication: Ischaemic cardiomyopathy
     Dosage: 80 MILLIGRAM, QD (1 TABLET ONCE DAILY)
     Route: 065
  24. NITROGLYCERIN [Concomitant]
     Active Substance: NITROGLYCERIN
     Indication: Ischaemic cardiomyopathy
     Dosage: 0.4 MILLIGRAM, PRN (1 TABLET EVERY 5 MIN AS NEEDED)
     Route: 065
  25. SOTALOL [Concomitant]
     Active Substance: SOTALOL
     Indication: Ischaemic cardiomyopathy
     Dosage: 120 MILLIGRAM, BID (1 TABLET IN THE MORNING AND EVENING)
     Route: 065
  26. ALENDRONATE [Concomitant]
     Active Substance: ALENDRONATE SODIUM
     Indication: Osteoporosis
     Dosage: 70 MILLIGRAM, QW (1 TABLET ONCE A WEEK)
     Route: 065
  27. VITAMINS [Concomitant]
     Active Substance: VITAMINS
     Indication: Vitamin supplementation
     Dosage: 1 DOSAGE FORM, QD (1 TABLET IN THE MORNING)
     Route: 065

REACTIONS (3)
  - Drug interaction [Unknown]
  - Therapeutic product effect decreased [Unknown]
  - Drug ineffective [Unknown]
